FAERS Safety Report 4506026-1 (Version None)
Quarter: 2004Q4

REPORT INFORMATION
  Report Type: 
  Country: None (occurrence: None)
  Receive Date: 20041025
  Receipt Date: 20030912
  Transmission Date: 20050328
  Serious: Yes (Other)
  Sender: FDA-Public Use
  Company Number: US-JNJFOC-20030706912

PATIENT
  Sex: Female

DRUGS (15)
  1. REMICADE [Suspect]
     Indication: RHEUMATOID ARTHRITIS
     Dosage: 200 MG
     Dates: start: 20030724
  2. MOBIC [Concomitant]
  3. HYDROCODONE/APAP (VICODIN) [Concomitant]
  4. NASONEX [Concomitant]
  5. LEVOXYL [Concomitant]
  6. LUMIGAN [Concomitant]
  7. ALLEGRA [Concomitant]
  8. AZOFT (BRINZOLAMIDE) [Concomitant]
  9. PREDNISONE [Concomitant]
  10. SUCRAFATE (SUCRALFATE) [Concomitant]
  11. ALBUTERAL (SALBUTAMOL) [Concomitant]
  12. ZANTAC [Concomitant]
  13. METHOTREXATE [Concomitant]
  14. FOLIC ACID [Concomitant]
  15. IRON (IRON) [Concomitant]

REACTIONS (1)
  - DYSPNOEA [None]
